FAERS Safety Report 25020166 (Version 1)
Quarter: 2025Q1

REPORT INFORMATION
  Report Type: Spontaneous
  Country: US (occurrence: US)
  Receive Date: 20250227
  Receipt Date: 20250227
  Transmission Date: 20250409
  Serious: No
  Sender: PFIZER
  Company Number: US-PFIZER INC-202500045252

PATIENT
  Age: 37 Year
  Sex: Female
  Weight: 62.585 kg

DRUGS (3)
  1. PAXLOVID [Suspect]
     Active Substance: NIRMATRELVIR\RITONAVIR
     Indication: COVID-19
     Dosage: 2ND CYCLE
     Route: 048
     Dates: start: 2024, end: 2024
  2. PLAQUENIL [Concomitant]
     Active Substance: HYDROXYCHLOROQUINE SULFATE
     Indication: Systemic lupus erythematosus
     Dosage: 300 MG, 1X/DAY
  3. NALTREXONE [Concomitant]
     Active Substance: NALTREXONE
     Indication: Post-acute COVID-19 syndrome
     Dosage: 9 MG, 1X/DAY (LOW DOSE)

REACTIONS (2)
  - Off label use [Unknown]
  - Product use issue [Unknown]

NARRATIVE: CASE EVENT DATE: 20240101
